FAERS Safety Report 10616738 (Version 2)
Quarter: 2014Q4

REPORT INFORMATION
  Report Type: Spontaneous
  Country: FR (occurrence: FR)
  Receive Date: 20141201
  Receipt Date: 20141211
  Transmission Date: 20150529
  Serious: Yes (Hospitalization)
  Sender: FDA-Public Use
  Company Number: FR-WATSON-2014-25580

PATIENT
  Age: 82 Year
  Sex: Female

DRUGS (9)
  1. IPRATROPIUM [Suspect]
     Active Substance: IPRATROPIUM
     Indication: LUNG DISORDER
     Dosage: 3 DF DAILY
     Route: 055
     Dates: start: 20141003
  2. BRICANYL [Suspect]
     Active Substance: TERBUTALINE SULFATE
     Indication: LUNG DISORDER
     Dosage: 3 DF DAILY
     Route: 055
     Dates: start: 20141003
  3. PRADAXA [Suspect]
     Active Substance: DABIGATRAN ETEXILATE MESYLATE
     Indication: PRODUCT USED FOR UNKNOWN INDICATION
     Dosage: 220 MG, DAILY
     Route: 048
  4. ESOMEPRAZOLE ACTAVIS [Suspect]
     Active Substance: ESOMEPRAZOLE
     Indication: PRODUCT USED FOR UNKNOWN INDICATION
     Dosage: 80 MG, DAILY
     Route: 048
     Dates: start: 20141007, end: 20141012
  5. FLECAINE [Suspect]
     Active Substance: FLECAINIDE
     Indication: ATRIAL FIBRILLATION
     Dosage: 100 MG, DAILY
     Route: 048
  6. TANAKAN [Suspect]
     Active Substance: GINKGO
     Indication: PRODUCT USED FOR UNKNOWN INDICATION
     Dosage: 80 MG, DAILY
     Route: 048
  7. GAVISCON [Suspect]
     Active Substance: ALUMINUM HYDROXIDE\MAGNESIUM CARBONATE
     Indication: PRODUCT USED FOR UNKNOWN INDICATION
     Dosage: 3 DF DAILY
     Route: 048
     Dates: start: 20141007, end: 20141012
  8. MUCOMYSTENDO [Suspect]
     Active Substance: ACETYLCYSTEINE
     Indication: LUNG DISORDER
     Dosage: 3 DF DAILY
     Route: 050
     Dates: start: 20141006
  9. CEFTRIAXONE (UNKNOWN) [Suspect]
     Active Substance: CEFTRIAXONE
     Indication: LUNG DISORDER
     Dosage: 1 DF DAILY
     Route: 017
     Dates: start: 20141002

REACTIONS (2)
  - Lung disorder [None]
  - Eosinophilia [Unknown]

NARRATIVE: CASE EVENT DATE: 20141007
